FAERS Safety Report 14054163 (Version 1)
Quarter: 2017Q4

REPORT INFORMATION
  Report Type: Spontaneous
  Country: US (occurrence: US)
  Receive Date: 20171005
  Receipt Date: 20171005
  Transmission Date: 20180321
  Serious: No
  Sender: FDA-Public Use
  Company Number: US-B.I. PHARMACEUTICALS,INC./RIDGEFIELD-2017-BI-053236

PATIENT

DRUGS (8)
  1. LYRICA [Suspect]
     Active Substance: PREGABALIN
     Indication: DIABETIC NEUROPATHY
  2. MOBIC [Suspect]
     Active Substance: MELOXICAM
     Indication: SPINAL COLUMN STENOSIS
  3. INSULIN [Suspect]
     Active Substance: INSULIN NOS
     Indication: DIABETES MELLITUS
     Route: 065
  4. GLIPIZIDE. [Suspect]
     Active Substance: GLIPIZIDE
     Indication: DIABETES MELLITUS
     Route: 065
  5. MOBIC [Suspect]
     Active Substance: MELOXICAM
     Indication: BACK PAIN
     Route: 065
  6. LYRICA [Suspect]
     Active Substance: PREGABALIN
     Indication: NEUROPATHY PERIPHERAL
     Dosage: UNIT DOSE/ DAILY DOSE: 2 TO 3 PILLS A DAY.
     Route: 048
  7. METFORMIN [Suspect]
     Active Substance: METFORMIN HYDROCHLORIDE
     Indication: DIABETES MELLITUS
     Route: 065
  8. LYRICA [Suspect]
     Active Substance: PREGABALIN
     Indication: CERVICAL SPINAL STENOSIS
     Dosage: TWO 50 MG IN THE MORNING, AFTERNOON AT LUNCH AND EVENING.
     Route: 065

REACTIONS (9)
  - Blood glucose increased [Unknown]
  - Discomfort [Unknown]
  - Skin burning sensation [Not Recovered/Not Resolved]
  - Drug hypersensitivity [Unknown]
  - Pain [Unknown]
  - Peripheral swelling [Unknown]
  - Cervical spinal stenosis [Unknown]
  - Diabetic neuropathy [Unknown]
  - Erythema [Not Recovered/Not Resolved]
